FAERS Safety Report 5505756-2 (Version None)
Quarter: 2007Q4

REPORT INFORMATION
  Report Type: 
  Country: None (occurrence: None)
  Receive Date: 20071102
  Receipt Date: 20071023
  Transmission Date: 20080405
  Serious: Yes (Hospitalization, Other)
  Sender: FDA-Public Use
  Company Number: SE-PFIZER INC-2007089406

PATIENT
  Sex: Female

DRUGS (4)
  1. LYRICA [Suspect]
     Indication: PAIN
  2. SOBRIL [Suspect]
     Indication: ANXIETY
  3. COZAAR [Concomitant]
  4. WARAN [Concomitant]

REACTIONS (3)
  - DIZZINESS [None]
  - PARESIS [None]
  - POISONING [None]
